FAERS Safety Report 14255818 (Version 1)
Quarter: 2017Q4

REPORT INFORMATION
  Report Type: Report from Study
  Country: US (occurrence: US)
  Receive Date: 20171206
  Receipt Date: 20171206
  Transmission Date: 20180321
  Serious: Yes (Hospitalization)
  Sender: FDA-Public Use
  Company Number: US-UCBSA-2017048551

PATIENT
  Age: 46 Year
  Sex: Female

DRUGS (1)
  1. LACOSAMIDE. [Suspect]
     Active Substance: LACOSAMIDE
     Indication: PRODUCT USED FOR UNKNOWN INDICATION
     Dosage: 2 TABLETS DAILY
     Dates: end: 20171128

REACTIONS (3)
  - Fall [Not Recovered/Not Resolved]
  - Seizure [Not Recovered/Not Resolved]
  - Laceration [Not Recovered/Not Resolved]

NARRATIVE: CASE EVENT DATE: 20171128
